FAERS Safety Report 17659268 (Version 2)
Quarter: 2020Q2

REPORT INFORMATION
  Report Type: Spontaneous
  Country: US (occurrence: US)
  Receive Date: 20200413
  Receipt Date: 20200507
  Transmission Date: 20200713
  Serious: No
  Sender: FDA-Public Use
  Company Number: US-GLAXOSMITHKLINE-US2020AMR059668

PATIENT
  Age: 66 Year
  Sex: Female

DRUGS (1)
  1. ALBUTEROL SULFATE INHALATION POWDER [Suspect]
     Active Substance: ALBUTEROL SULFATE
     Indication: PNEUMONIA
     Dosage: 1 PUFF(S) EVERY 4 HOUR
     Route: 065
     Dates: start: 20200401

REACTIONS (4)
  - Product dose omission [Unknown]
  - Wrong technique in device usage process [Unknown]
  - Product complaint [Unknown]
  - Product use in unapproved indication [Unknown]

NARRATIVE: CASE EVENT DATE: 20200402
